FAERS Safety Report 5317203-4 (Version None)
Quarter: 2007Q2

REPORT INFORMATION
  Report Type: 
  Country: None (occurrence: None)
  Receive Date: 20070504
  Receipt Date: 20070426
  Transmission Date: 20071010
  Serious: Yes (Hospitalization)
  Sender: FDA-Public Use
  Company Number: BE-BRISTOL-MYERS SQUIBB COMPANY-13738463

PATIENT
  Age: 56 Year
  Sex: Female

DRUGS (5)
  1. SINEMET [Suspect]
     Indication: PARKINSON'S DISEASE
     Dosage: 12.5 + 125MG/QID 10-OCT-2006-25-MAR-2007; REDUCED TO 12.5 + 125MF BID ON 26-MARCH-2007
     Route: 048
     Dates: start: 20061010, end: 20070325
  2. REQUIP [Suspect]
     Indication: PARKINSON'S DISEASE
     Route: 048
     Dates: start: 20070101
  3. ROPINIROLE HCL [Concomitant]
     Indication: PARKINSON'S DISEASE
  4. EVISTA [Concomitant]
     Dates: start: 20040101
  5. INDERAL [Concomitant]
     Dates: start: 20000101

REACTIONS (12)
  - DYSPHAGIA [None]
  - DYSPNOEA [None]
  - ECCHYMOSIS [None]
  - INSOMNIA [None]
  - LOSS OF CONSCIOUSNESS [None]
  - MUSCULOSKELETAL STIFFNESS [None]
  - PAIN [None]
  - PALPITATIONS [None]
  - PULSE PRESSURE INCREASED [None]
  - SOMNOLENCE [None]
  - SYNCOPE [None]
  - WEIGHT DECREASED [None]
